FAERS Safety Report 10028717 (Version 2)
Quarter: 2014Q1

REPORT INFORMATION
  Report Type: Spontaneous
  Country: US (occurrence: US)
  Receive Date: 20140321
  Receipt Date: 20140321
  Transmission Date: 20141002
  Serious: Yes (Other)
  Sender: FDA-Public Use
  Company Number: US-GE HEALTHCARE MEDICAL DIAGNOSTICS-OSCN-PR-0811S-0603

PATIENT
  Sex: Female

DRUGS (3)
  1. GADOLINIUM (UNSPECIFIED) [Suspect]
     Indication: BRAIN ABSCESS
     Route: 042
     Dates: start: 20061116, end: 20061116
  2. GADOLINIUM (UNSPECIFIED) [Suspect]
     Indication: BRAIN ABSCESS
     Route: 042
     Dates: start: 20061127, end: 20061127
  3. GADOLINIUM (UNSPECIFIED) [Suspect]
     Indication: BRAIN ABSCESS
     Route: 042
     Dates: start: 20061212, end: 20061212

REACTIONS (1)
  - Nephrogenic systemic fibrosis [Not Recovered/Not Resolved]
